FAERS Safety Report 17444324 (Version 1)
Quarter: 2020Q1

REPORT INFORMATION
  Report Type: Spontaneous
  Country: US (occurrence: US)
  Receive Date: 20200207
  Receipt Date: 20200207
  Transmission Date: 20200409
  Serious: Yes (Death)
  Sender: FDA-Public Use
  Company Number: None

PATIENT
  Age: 91 Year
  Sex: Male

DRUGS (5)
  1. PRESERVISION CAP [Concomitant]
  2. AMOX/K CLAV TAB [Concomitant]
  3. PROMACTA [Concomitant]
     Active Substance: ELTROMBOPAG OLAMINE
  4. MAGNESIUM TAB [Concomitant]
  5. PROMACTA [Suspect]
     Active Substance: ELTROMBOPAG OLAMINE
     Indication: DEMENTIA ALZHEIMER^S TYPE
     Route: 048
     Dates: start: 20200131

REACTIONS (1)
  - Death [None]

NARRATIVE: CASE EVENT DATE: 20200206
